FAERS Safety Report 6823488-5 (Version None)
Quarter: 2010Q3

REPORT INFORMATION
  Report Type: 
  Country: None (occurrence: None)
  Receive Date: 20100708
  Receipt Date: 20100629
  Transmission Date: 20110219
  Serious: Yes (Other)
  Sender: FDA-Public Use
  Company Number: US-JNJFOC-20100701042

PATIENT
  Sex: Male
  Weight: 97.52 kg

DRUGS (8)
  1. INVEGA SUSTENNA [Suspect]
     Indication: SCHIZOPHRENIA
     Route: 030
  2. INVEGA SUSTENNA [Suspect]
     Route: 030
  3. K DUR [Concomitant]
     Indication: NUTRITIONAL SUPPORT
  4. MAGNESIUM OXIDE [Concomitant]
     Indication: PRODUCT USED FOR UNKNOWN INDICATION
  5. NOVOLOG MIX 70/30 [Concomitant]
     Indication: DIABETES MELLITUS
  6. BENICAR [Concomitant]
     Indication: BLOOD CHOLESTEROL
  7. PRAVASTATIN [Concomitant]
     Indication: BLOOD CHOLESTEROL
  8. ASPIRIN [Concomitant]
     Indication: PROPHYLAXIS

REACTIONS (1)
  - RETINAL DETACHMENT [None]
